FAERS Safety Report 9995743 (Version 1)
Quarter: 2014Q1

REPORT INFORMATION
  Report Type: Spontaneous
  Country: FR (occurrence: FR)
  Receive Date: 20140311
  Receipt Date: 20140311
  Transmission Date: 20141002
  Serious: Yes (Death, Hospitalization, Other)
  Sender: FDA-Public Use
  Company Number: FR-ELI_LILLY_AND_COMPANY-FR201403000650

PATIENT
  Age: 86 Year
  Sex: Female

DRUGS (1)
  1. GEMZAR [Suspect]
     Indication: PANCREATIC CARCINOMA
     Dosage: 1440 MG, CYCLICAL
     Route: 042
     Dates: start: 20131129, end: 20140109

REACTIONS (8)
  - Interstitial lung disease [Fatal]
  - Subcutaneous emphysema [Unknown]
  - Haemodynamic instability [Unknown]
  - Pneumomediastinum [Unknown]
  - Mitral valve calcification [Unknown]
  - Tracheal injury [Unknown]
  - Acute respiratory distress syndrome [Unknown]
  - Oedema peripheral [Unknown]
